FAERS Safety Report 16047159 (Version 1)
Quarter: 2019Q1

REPORT INFORMATION
  Report Type: Spontaneous
  Country: ES (occurrence: ES)
  Receive Date: 20190307
  Receipt Date: 20190307
  Transmission Date: 20190418
  Serious: Yes (Death, Other)
  Sender: FDA-Public Use
  Company Number: ES-TEVA-2019-ES-1019130

PATIENT
  Age: 78 Year
  Sex: Female

DRUGS (9)
  1. RAMIPRIL (2497A) [Concomitant]
     Active Substance: RAMIPRIL
  2. CAPECITABINA (1224A) [Suspect]
     Active Substance: CAPECITABINE
     Indication: GASTRIC CANCER
     Dates: start: 20190124
  3. BISOPROLOL (2328A) [Concomitant]
     Active Substance: BISOPROLOL
  4. OXALIPLATINO (7351A) [Suspect]
     Active Substance: OXALIPLATIN
     Indication: GASTRIC CANCER
     Dates: start: 20190124
  5. TRASTUZUMAB (1168A) [Suspect]
     Active Substance: TRASTUZUMAB
     Indication: GASTRIC CANCER
     Route: 042
     Dates: start: 20190124, end: 20190124
  6. SEGURIL [Concomitant]
     Active Substance: FUROSEMIDE
  7. ELIQUIS [Concomitant]
     Active Substance: APIXABAN
  8. ATORVASTATINA (7400A) [Concomitant]
     Active Substance: ATORVASTATIN
  9. PANTOPRAZOL (7275A) [Concomitant]
     Active Substance: PANTOPRAZOLE

REACTIONS (5)
  - Hypothermia [Fatal]
  - Asthenia [Fatal]
  - Acute kidney injury [Fatal]
  - Nausea [Fatal]
  - Diarrhoea [Fatal]

NARRATIVE: CASE EVENT DATE: 20190124
